FAERS Safety Report 17879932 (Version 7)
Quarter: 2021Q2

REPORT INFORMATION
  Report Type: Report from Study
  Country: BR (occurrence: BR)
  Receive Date: 20200610
  Receipt Date: 20210429
  Transmission Date: 20210717
  Serious: Yes (Hospitalization)
  Sender: FDA-Public Use
  Company Number: BR-EMD SERONO-9166985

PATIENT
  Age: 36 Year
  Sex: Female

DRUGS (17)
  1. HIDANTAL [Concomitant]
     Active Substance: PHENYTOIN SODIUM
     Indication: PRODUCT USED FOR UNKNOWN INDICATION
  2. AMLODIPINE [Concomitant]
     Active Substance: AMLODIPINE BESYLATE
     Indication: NASOPHARYNGITIS
     Dosage: 1 TIME WHEN IT COLD
  3. DAFLON                             /00426001/ [Concomitant]
     Active Substance: DIOSMIN
     Indication: PRODUCT USED FOR UNKNOWN INDICATION
     Dosage: 1000 UNSPECIFIED UNITS 1 TIME
  4. DEPAKOTE [Concomitant]
     Active Substance: DIVALPROEX SODIUM
     Indication: PRODUCT USED FOR UNKNOWN INDICATION
  5. EQUITAM                            /00273201/ [Concomitant]
     Indication: PRODUCT USED FOR UNKNOWN INDICATION
  6. HYDROCHLOROTHIAZIDE. [Concomitant]
     Active Substance: HYDROCHLOROTHIAZIDE
     Indication: PRODUCT USED FOR UNKNOWN INDICATION
  7. SIBLIMA [Concomitant]
     Indication: PRODUCT USED FOR UNKNOWN INDICATION
  8. REBIF [Suspect]
     Active Substance: INTERFERON BETA-1A
     Route: 058
     Dates: start: 20190801, end: 20200106
  9. BIO?MANGUINHOS BETAINTERFERONA 1A 22 MCG [Suspect]
     Active Substance: INTERFERON BETA-1A
     Dosage: THERAPY START DATE: ??2020
     Route: 058
  10. BIO?MANGUINHOS BETAINTERFERONA 1A 22 MCG [Suspect]
     Active Substance: INTERFERON BETA-1A
     Indication: MULTIPLE SCLEROSIS
     Dosage: THERAPY START DATE: 08?JAN?2020
     Route: 058
     Dates: end: 2020
  11. BIO?MANGUINHOS BETAINTERFERONA 1A 22 MCG [Suspect]
     Active Substance: INTERFERON BETA-1A
     Dosage: THERAPY START DATE:16 APR 2021
     Route: 058
  12. DEPAKENE [Concomitant]
     Active Substance: VALPROIC ACID
     Indication: PRODUCT USED FOR UNKNOWN INDICATION
  13. DIPYRONE [Concomitant]
     Active Substance: DIPYRONE
     Indication: PRODUCT USED FOR UNKNOWN INDICATION
  14. REBIF [Suspect]
     Active Substance: INTERFERON BETA-1A
     Indication: MULTIPLE SCLEROSIS
     Route: 058
     Dates: start: 20120619, end: 20190731
  15. BIO?MANGUINHOS BETAINTERFERONA 1A 22 MCG [Suspect]
     Active Substance: INTERFERON BETA-1A
     Route: 058
  16. DIAZEPAM. [Concomitant]
     Active Substance: DIAZEPAM
     Indication: PRODUCT USED FOR UNKNOWN INDICATION
  17. ORGANONEURO CEREBRAL [Concomitant]
     Indication: PRODUCT USED FOR UNKNOWN INDICATION

REACTIONS (34)
  - Multiple sclerosis relapse [Not Recovered/Not Resolved]
  - Seizure [Recovering/Resolving]
  - Feeling hot [Not Recovered/Not Resolved]
  - Injection site nodule [Not Recovered/Not Resolved]
  - Fatigue [Recovered/Resolved]
  - Abdominal pain upper [Not Recovered/Not Resolved]
  - Nausea [Not Recovered/Not Resolved]
  - Thyroid disorder [Unknown]
  - Feeding disorder [Recovering/Resolving]
  - Poor quality sleep [Recovered/Resolved]
  - Hypotension [Unknown]
  - Menstruation irregular [Not Recovered/Not Resolved]
  - Heavy menstrual bleeding [Not Recovered/Not Resolved]
  - Pain [Recovering/Resolving]
  - Abdominal discomfort [Not Recovered/Not Resolved]
  - Vomiting [Not Recovered/Not Resolved]
  - Alopecia [Recovering/Resolving]
  - Genital cyst [Not Recovered/Not Resolved]
  - Dry mouth [Recovering/Resolving]
  - Lack of injection site rotation [Not Recovered/Not Resolved]
  - Migraine [Recovering/Resolving]
  - Injection site bruising [Not Recovered/Not Resolved]
  - Headache [Recovering/Resolving]
  - Dyspepsia [Recovering/Resolving]
  - Hypertension [Recovering/Resolving]
  - Hypothyroidism [Recovering/Resolving]
  - Pyrexia [Recovered/Resolved]
  - Oral mucosal discolouration [Unknown]
  - Hyperhidrosis [Recovering/Resolving]
  - Insomnia [Recovering/Resolving]
  - Injection site mass [Not Recovered/Not Resolved]
  - Raynaud^s phenomenon [Unknown]
  - Fall [Recovered/Resolved]
  - Taste disorder [Recovering/Resolving]

NARRATIVE: CASE EVENT DATE: 201206
